FAERS Safety Report 10004448 (Version 2)
Quarter: 2014Q1

REPORT INFORMATION
  Report Type: Spontaneous
  Country: BR (occurrence: BR)
  Receive Date: 20140312
  Receipt Date: 20140318
  Transmission Date: 20141002
  Serious: Yes (Hospitalization, Other)
  Sender: FDA-Public Use
  Company Number: BR-PFIZER INC-2014070121

PATIENT
  Age: 73 Year
  Sex: Male
  Weight: 77 kg

DRUGS (4)
  1. FRONTAL [Suspect]
     Indication: SLEEP DISORDER
     Dosage: 1 MG (2 TABLETS OF 0.5MG), DAILY
     Route: 048
     Dates: start: 20110725
  2. ASPIRINA [Concomitant]
  3. SELOZOK [Concomitant]
  4. ATACAND [Concomitant]

REACTIONS (1)
  - Aortic dissection [Unknown]
